FAERS Safety Report 4972150-2 (Version None)
Quarter: 2006Q2

REPORT INFORMATION
  Report Type: 
  Country: None (occurrence: None)
  Receive Date: 20060413
  Receipt Date: 20060330
  Transmission Date: 20061013
  Serious: Yes (Other)
  Sender: FDA-Public Use
  Company Number: LB-NOVOPROD-252246

PATIENT
  Age: 15 Year
  Sex: Male
  Weight: 48 kg

DRUGS (2)
  1. NORDITROPIN [Suspect]
     Indication: GROWTH HORMONE DEFICIENCY
     Dosage: 5.2 U, UNK
     Dates: start: 20050905
  2. ASCORBIC ACID [Concomitant]

REACTIONS (5)
  - ANOREXIA [None]
  - FATIGUE [None]
  - HEADACHE [None]
  - OVERDOSE [None]
  - SYNCOPE [None]
